FAERS Safety Report 8376643-X (Version None)
Quarter: 2012Q2

REPORT INFORMATION
  Report Type: 
  Country: None (occurrence: None)
  Receive Date: 20120522
  Receipt Date: 20120514
  Transmission Date: 20120825
  Serious: Yes (Other)
  Sender: FDA-Public Use
  Company Number: FR-ASTRAZENECA-2012SE10024

PATIENT
  Age: 65 Year
  Sex: Female

DRUGS (2)
  1. ARIMIDEX [Suspect]
     Indication: BREAST CANCER
     Route: 048
     Dates: start: 20090401, end: 20120101
  2. UNSPECIFIED BETA BLOCKERS [Concomitant]
     Route: 048

REACTIONS (2)
  - DYSGEUSIA [None]
  - TINNITUS [None]
